FAERS Safety Report 7121401-7 (Version None)
Quarter: 2010Q4

REPORT INFORMATION
  Report Type: 
  Country: None (occurrence: None)
  Receive Date: 20101124
  Receipt Date: 20101119
  Transmission Date: 20110411
  Serious: Yes (Life-Threatening, Hospitalization, Disabling)
  Sender: FDA-Public Use
  Company Number: US-BAYER-201038869NA

PATIENT
  Age: 59 Year
  Sex: Female
  Weight: 66 kg

DRUGS (2)
  1. AVELOX [Suspect]
     Indication: PROPHYLAXIS
     Route: 065
     Dates: start: 20100708, end: 20100708
  2. HERCEPTIN [Concomitant]
     Indication: BREAST CANCER

REACTIONS (1)
  - RESPIRATORY ARREST [None]
